FAERS Safety Report 6379880-9 (Version None)
Quarter: 2009Q3

REPORT INFORMATION
  Report Type: 
  Country: None (occurrence: None)
  Receive Date: 20090928
  Receipt Date: 20090916
  Transmission Date: 20100115
  Serious: Yes (Other)
  Sender: FDA-Public Use
  Company Number: PHHY2009VE17918

PATIENT
  Sex: Female

DRUGS (6)
  1. TASIGNA [Suspect]
     Indication: CHRONIC MYELOID LEUKAEMIA
     Dosage: 200 MG, BID
     Dates: start: 20090125, end: 20090201
  2. TASIGNA [Suspect]
     Dosage: 200 MG, QD
     Route: 048
     Dates: start: 20090201
  3. TASIGNA [Suspect]
     Dosage: 200 MG, BID
     Route: 048
     Dates: end: 20090422
  4. TASIGNA [Suspect]
     Dosage: 200 MG DAILY
     Route: 048
     Dates: end: 20090911
  5. REMINALET [Concomitant]
     Indication: HYPERTENSION
     Dosage: UNK
  6. QUINAPRIL [Concomitant]
     Indication: HYPERTENSION
     Dosage: 10 MG, QD

REACTIONS (8)
  - ASTHENIA [None]
  - DIZZINESS [None]
  - GINGIVAL DISORDER [None]
  - HAEMOGLOBIN DECREASED [None]
  - LOOSE TOOTH [None]
  - MOUTH ULCERATION [None]
  - PLATELET COUNT DECREASED [None]
  - WHITE BLOOD CELL COUNT DECREASED [None]
